FAERS Safety Report 4625468-7 (Version None)
Quarter: 2005Q2

REPORT INFORMATION
  Report Type: 
  Country: None (occurrence: None)
  Receive Date: 20050401
  Receipt Date: 20050316
  Transmission Date: 20051028
  Serious: Yes (Hospitalization)
  Sender: FDA-Public Use
  Company Number: US-BOEHRINGER INGELHEIM PHARMACEUTICALS, INC.-2005-BP-04482BP

PATIENT
  Sex: Female

DRUGS (4)
  1. SPIRIVA [Suspect]
     Indication: CHRONIC OBSTRUCTIVE PULMONARY DISEASE
     Route: 055
     Dates: start: 20050101
  2. ALBUTEROL [Concomitant]
     Route: 055
  3. DIAZIDE [Concomitant]
  4. VITAMIN E [Concomitant]

REACTIONS (6)
  - COUGH [None]
  - DRY MOUTH [None]
  - LIMB DISCOMFORT [None]
  - SCAR [None]
  - THROAT IRRITATION [None]
  - URINARY INCONTINENCE [None]
